FAERS Safety Report 16773055 (Version 1)
Quarter: 2019Q3

REPORT INFORMATION
  Report Type: Spontaneous
  Country: US (occurrence: US)
  Receive Date: 20190904
  Receipt Date: 20190904
  Transmission Date: 20191005
  Serious: No
  Sender: FDA-Public Use
  Company Number: US-TEVA-2019-US-1101530

PATIENT
  Sex: Female

DRUGS (1)
  1. BUPRENORPHINE SUBLINGUAL TABLET ACTAVIS [Suspect]
     Active Substance: BUPRENORPHINE HYDROCHLORIDE
     Indication: ARTHRALGIA
     Dosage: DOSE STRENGTH: 8
     Route: 060
     Dates: start: 20190727, end: 20190826

REACTIONS (3)
  - Nausea [Recovered/Resolved]
  - Dizziness [Not Recovered/Not Resolved]
  - Product substitution issue [Unknown]

NARRATIVE: CASE EVENT DATE: 20190727
